FAERS Safety Report 6025170-3 (Version None)
Quarter: 2008Q4

REPORT INFORMATION
  Report Type: 
  Country: None (occurrence: None)
  Receive Date: 20081231
  Receipt Date: 20081222
  Transmission Date: 20090506
  Serious: Yes (Death)
  Sender: FDA-Public Use
  Company Number: GB-ABBOTT-08P-167-0488723-00

PATIENT
  Sex: Female
  Weight: 58 kg

DRUGS (8)
  1. ZEMPLAR [Suspect]
     Indication: HYPERPARATHYROIDISM TERTIARY
     Route: 048
     Dates: start: 20080820, end: 20081018
  2. DIALYSIS [Concomitant]
     Indication: DRUG USE FOR UNKNOWN INDICATION
  3. LITHIUM [Concomitant]
     Indication: BIPOLAR DISORDER
     Route: 048
  4. LEVOTHYROXINE [Concomitant]
     Indication: HYPOTHYROIDISM
     Route: 048
  5. OMEPRAZOLE [Concomitant]
     Indication: GASTROOESOPHAGEAL REFLUX DISEASE
     Route: 048
  6. MIRTAZAPINE [Concomitant]
     Indication: BIPOLAR DISORDER
     Route: 048
  7. SIMVASTATIN [Concomitant]
     Indication: HYPERCHOLESTEROLAEMIA
     Route: 048
  8. DARBEPOETIN ALFA [Concomitant]
     Indication: NEPHROGENIC ANAEMIA
     Route: 058

REACTIONS (2)
  - DRUG INEFFECTIVE [None]
  - THERAPY CESSATION [None]
